FAERS Safety Report 12768761 (Version 1)
Quarter: 2016Q3

REPORT INFORMATION
  Report Type: Report from Study
  Country: US (occurrence: US)
  Receive Date: 20160921
  Receipt Date: 20160921
  Transmission Date: 20161109
  Serious: Yes (Death)
  Sender: FDA-Public Use
  Company Number: US-PFIZER INC-2016437943

PATIENT
  Age: 50 Year
  Sex: Female

DRUGS (7)
  1. BRINCIDOFOVIR [Suspect]
     Active Substance: BRINCIDOFOVIR
     Indication: CYTOMEGALOVIRUS INFECTION
     Dosage: 200 MG, 2X/WEEK
  2. FOSCARNET SODIUM. [Suspect]
     Active Substance: FOSCARNET SODIUM
     Indication: CYTOMEGALOVIRUS INFECTION
     Dosage: 60 MG/KG, 3X/DAY (PER DOSE EVERY 8 H)
  3. GANCICLOVIR. [Concomitant]
     Active Substance: GANCICLOVIR
     Indication: CYTOMEGALOVIRUS INFECTION
     Dosage: 5 MG/KG, 2X/DAY (PER DOSE EVERY 12 H)
  4. FOSCARNET SODIUM. [Suspect]
     Active Substance: FOSCARNET SODIUM
     Dosage: 90 MG/KG, DAILY
  5. BRINCIDOFOVIR [Suspect]
     Active Substance: BRINCIDOFOVIR
     Dosage: 300 MG, 2X/WEEK
  6. FOSCARNET SODIUM. [Suspect]
     Active Substance: FOSCARNET SODIUM
     Dosage: 80 MG/KG, 3X/DAY (PER DOSE EVERY 8 H)
  7. VALGANCICLOVIR. [Concomitant]
     Active Substance: VALGANCICLOVIR
     Indication: CYTOMEGALOVIRUS INFECTION
     Dosage: 900 MG, 1X/DAY
     Route: 048

REACTIONS (1)
  - Drug resistance [Fatal]
